FAERS Safety Report 8340948-9 (Version None)
Quarter: 2012Q2

REPORT INFORMATION
  Report Type: 
  Country: None (occurrence: None)
  Receive Date: 20120507
  Receipt Date: 20120426
  Transmission Date: 20120825
  Serious: Yes (Other)
  Sender: FDA-Public Use
  Company Number: US-PERRIGO-12US003781

PATIENT
  Age: 12 Year
  Sex: Female

DRUGS (1)
  1. NAPROXEN SODIUM [Suspect]
     Indication: PAIN
     Dosage: UNK, Q8H, PRN
     Route: 048
     Dates: start: 20120401, end: 20120414

REACTIONS (6)
  - SWELLING [None]
  - OEDEMA PERIPHERAL [None]
  - RASH [None]
  - PYREXIA [None]
  - VASCULITIS [None]
  - JOINT SWELLING [None]
